FAERS Safety Report 7092043-7 (Version None)
Quarter: 2010Q4

REPORT INFORMATION
  Report Type: 
  Country: None (occurrence: None)
  Receive Date: 20101109
  Receipt Date: 20081211
  Transmission Date: 20110411
  Serious: No
  Sender: FDA-Public Use
  Company Number: US-KINGPHARMUSA00001-K200801408

PATIENT

DRUGS (1)
  1. SKELAXIN [Suspect]
     Dosage: UNK
     Route: 048

REACTIONS (2)
  - FEELING ABNORMAL [None]
  - FEELING JITTERY [None]
